FAERS Safety Report 15606723 (Version 1)
Quarter: 2018Q4

REPORT INFORMATION
  Report Type: Spontaneous
  Country: CA (occurrence: CA)
  Receive Date: 20181112
  Receipt Date: 20181112
  Transmission Date: 20190205
  Serious: Yes (Other)
  Sender: FDA-Public Use
  Company Number: CA-BRISTOL-MYERS SQUIBB COMPANY-BMS-2018-104723

PATIENT
  Age: 92 Year
  Sex: Female
  Weight: 70 kg

DRUGS (2)
  1. ELIQUIS [Suspect]
     Active Substance: APIXABAN
     Indication: THROMBOSIS PROPHYLAXIS
     Dosage: 2.5 MG, BID
     Route: 048
  2. LOVENOX [Concomitant]
     Active Substance: ENOXAPARIN SODIUM
     Indication: PRODUCT USED FOR UNKNOWN INDICATION
     Dosage: UNK
     Route: 065

REACTIONS (12)
  - Lip erythema [Recovered/Resolved]
  - Glossodynia [Recovered/Resolved]
  - Gingival pain [Recovered/Resolved]
  - Tongue fungal infection [Recovered/Resolved]
  - Chapped lips [Recovered/Resolved]
  - Tongue discolouration [Recovered/Resolved]
  - Tongue haemorrhage [Recovered/Resolved]
  - Lip dry [Recovered/Resolved]
  - Scab [Recovered/Resolved]
  - Gingival discomfort [Recovered/Resolved]
  - Glossitis [Recovered/Resolved]
  - Tongue discomfort [Recovered/Resolved]
